FAERS Safety Report 8621436-9 (Version None)
Quarter: 2012Q3

REPORT INFORMATION
  Report Type: 
  Country: None (occurrence: None)
  Receive Date: 20120824
  Receipt Date: 20120824
  Transmission Date: 20120928
  Serious: Yes (Hospitalization)
  Sender: FDA-Public Use
  Company Number: JP-ABBOTT-12P-087-0936355-00

PATIENT
  Sex: Female
  Weight: 57 kg

DRUGS (14)
  1. AVELOX [Concomitant]
     Indication: UPPER RESPIRATORY TRACT INFLAMMATION
     Dates: start: 20120131, end: 20120202
  2. MUCOSOLVAN [Concomitant]
     Indication: INFLUENZA
     Route: 048
  3. INAVIR [Concomitant]
     Indication: INFLUENZA
     Dates: start: 20120117, end: 20120117
  4. ANTIBIOTICS-RESISTANT LACTIC ACID BACTERIAE [Concomitant]
     Indication: UPPER RESPIRATORY TRACT INFLAMMATION
     Route: 048
     Dates: start: 20120131, end: 20120202
  5. KAKKONTOU [Concomitant]
     Indication: INFLUENZA
     Route: 048
     Dates: start: 20120117, end: 20120121
  6. MEDICON [Concomitant]
     Indication: INFLUENZA
     Route: 048
  7. CLARITHROMYCIN [Suspect]
     Indication: PRODUCT USED FOR UNKNOWN INDICATION
     Route: 048
     Dates: start: 20120117, end: 20120129
  8. ACETAMINOPHEN [Concomitant]
     Indication: INFLUENZA
     Dosage: PRN
  9. BROCIN [Concomitant]
     Indication: INFLUENZA
     Route: 048
     Dates: start: 20120117, end: 20120201
  10. APRICOT KERNAL WATER [Concomitant]
     Indication: INFLUENZA
     Route: 048
     Dates: start: 20120117, end: 20120201
  11. SENEGA SYRUP [Concomitant]
     Indication: INFLUENZA
     Route: 048
  12. SAIBOKURO (HERBAL MEDICINE) [Concomitant]
     Indication: UPPER RESPIRATORY TRACT INFLAMMATION
     Dates: start: 20120123, end: 20120130
  13. MAOTO [Concomitant]
     Indication: UPPER RESPIRATORY TRACT INFLAMMATION
     Dates: start: 20120131, end: 20120202
  14. KEISHITO [Concomitant]
     Indication: UPPER RESPIRATORY TRACT INFLAMMATION
     Dates: start: 20120131, end: 20120202

REACTIONS (1)
  - DRUG-INDUCED LIVER INJURY [None]
